FAERS Safety Report 7904956-1 (Version None)
Quarter: 2011Q4

REPORT INFORMATION
  Report Type: 
  Country: None (occurrence: None)
  Receive Date: 20111109
  Receipt Date: 20111102
  Transmission Date: 20120403
  Serious: Yes (Hospitalization, Other)
  Sender: FDA-Public Use
  Company Number: PHEH2010US00473

PATIENT
  Sex: Female

DRUGS (42)
  1. ACETAMINOPHEN [Concomitant]
     Dosage: 650 MG, UNK
     Route: 048
  2. AMBIEN [Concomitant]
     Dosage: 10 MG, UNK
  3. METRONIDAZOLE [Concomitant]
     Dosage: 500 MG, UNK
  4. CARISOPRODOL [Concomitant]
     Dosage: 350 MG, UNK
  5. VALIUM [Concomitant]
     Dosage: 5 MG, UNK
     Route: 048
  6. TAMOXIFEN CITRATE [Concomitant]
  7. ZOLADEX [Concomitant]
  8. SONATA [Concomitant]
     Dosage: QHS
  9. XANAX [Concomitant]
     Dosage: BID
  10. ZOMETA [Suspect]
  11. DULCOLAX [Concomitant]
  12. BISACODYL [Concomitant]
     Dosage: 10 MG, UNK
  13. LIDOCAINE [Concomitant]
  14. DARVOCET-N 50 [Concomitant]
     Dosage: PRN
  15. NEXIUM [Concomitant]
     Dosage: QD
  16. DOXYCYCLINE [Concomitant]
     Dosage: 100 MG, UNK
  17. SOMA [Concomitant]
     Dosage: 350 MG, UNK
     Route: 048
  18. CEFOXITIN [Concomitant]
     Dosage: 2 MG, UNK
  19. CEFTIZOXIME SODIUM [Concomitant]
  20. KLONOPIN [Concomitant]
     Dosage: 5 MG,BID
  21. LAMISIL [Concomitant]
     Dosage: QD
  22. TORADOL [Concomitant]
     Dosage: 30 MG, UNK
  23. AUGMENTIN '125' [Concomitant]
     Dosage: 500 MG, UNK
  24. TEMAZEPAM [Concomitant]
  25. ATIVAN [Concomitant]
     Dosage: 2 MG, UNK
  26. REMERON [Concomitant]
     Dosage: QHS
  27. PERCOCET [Concomitant]
  28. COMPAZINE [Concomitant]
     Dosage: 5 MG, UNK
     Route: 048
  29. NALOXONE [Concomitant]
     Dosage: UNK
  30. MORPHINE SULFATE [Concomitant]
     Dosage: UNK
  31. MOTRIN [Concomitant]
     Dosage: 600 MG, UNK
  32. DEMEROL [Concomitant]
     Dosage: 50 MG, UNK
  33. ANZEMET [Concomitant]
     Dosage: 100 MG, UNK
  34. ZOFRAN [Concomitant]
     Dosage: 4 MG, UNK
  35. HEPARIN [Concomitant]
  36. FLAGYL [Concomitant]
     Dosage: 500 MG, UNK
  37. COLACE [Concomitant]
     Dosage: ONE CAPSULE DAILY
     Route: 048
  38. OXYCONTIN [Concomitant]
     Dosage: 20 MG, UNK
     Route: 048
  39. PHENERGAN [Concomitant]
     Dosage: 12.5 MG, UNK
  40. DEXAMETHASONE [Concomitant]
     Dosage: 120 MG, UNK
  41. XELODA [Concomitant]
     Dosage: 1000 MG, BID
     Route: 048
  42. PREVACID [Concomitant]
     Dosage: 30 MG,.QD

REACTIONS (45)
  - DECREASED INTEREST [None]
  - PERICARDIAL CYST [None]
  - SINUSITIS [None]
  - CHEST PAIN [None]
  - DEHYDRATION [None]
  - RECTAL CANCER [None]
  - ECZEMA [None]
  - GENERAL PHYSICAL HEALTH DETERIORATION [None]
  - OSTEOLYSIS [None]
  - HEPATITIS C [None]
  - INTERVERTEBRAL DISC PROTRUSION [None]
  - FALL [None]
  - DEPRESSION [None]
  - DYSPNOEA [None]
  - GASTROOESOPHAGEAL REFLUX DISEASE [None]
  - OSTEONECROSIS OF JAW [None]
  - PELVIC ABSCESS [None]
  - PAIN IN EXTREMITY [None]
  - HYPONATRAEMIA [None]
  - HAEMATURIA [None]
  - ANXIETY [None]
  - POSTMENOPAUSAL HAEMORRHAGE [None]
  - BACK PAIN [None]
  - RIB FRACTURE [None]
  - EAR PAIN [None]
  - PAIN [None]
  - BREAST CANCER [None]
  - UTERINE FIBROSIS [None]
  - LIGAMENT SPRAIN [None]
  - HAND FRACTURE [None]
  - BONE LESION [None]
  - SEPSIS [None]
  - THROMBOCYTOPENIA [None]
  - OVARIAN CYST [None]
  - ENDOMETRIAL HYPERPLASIA [None]
  - LOBAR PNEUMONIA [None]
  - HYPOTENSION [None]
  - LUNG INFILTRATION [None]
  - INTERVERTEBRAL DISC DEGENERATION [None]
  - NEOPLASM MALIGNANT [None]
  - RASH [None]
  - EMPHYSEMA [None]
  - METASTASES TO BONE [None]
  - PLEURAL EFFUSION [None]
  - METASTASES TO LIVER [None]
